FAERS Safety Report 9892037 (Version 4)
Quarter: 2014Q1

REPORT INFORMATION
  Report Type: Report from Study
  Country: IT (occurrence: IT)
  Receive Date: 20140212
  Receipt Date: 20140228
  Transmission Date: 20141002
  Serious: Yes (Other)
  Sender: FDA-Public Use
  Company Number: IT-PFIZER INC-2014038897

PATIENT
  Sex: 0
  Weight: 2.4 kg

DRUGS (2)
  1. ESCITALOPRAM OXALATE [Suspect]
     Indication: PANIC DISORDER
     Dosage: 10 MG, DAILY
     Route: 064
  2. ALPRAZOLAM [Suspect]
     Indication: PANIC DISORDER
     Dosage: 0.25 MG, DAILY
     Route: 064

REACTIONS (2)
  - Maternal exposure during pregnancy [Unknown]
  - Low birth weight baby [Unknown]
